FAERS Safety Report 24401674 (Version 5)
Quarter: 2024Q4

REPORT INFORMATION
  Report Type: Report from Study
  Country: US (occurrence: US)
  Receive Date: 20241007
  Receipt Date: 20241107
  Transmission Date: 20250114
  Serious: Yes (Hospitalization)
  Sender: JOHNSON AND JOHNSON
  Company Number: US-JNJFOC-20241012706

PATIENT
  Age: 68 Year
  Sex: Female
  Weight: 46.4 kg

DRUGS (6)
  1. EPOPROSTENOL SODIUM [Suspect]
     Active Substance: EPOPROSTENOL SODIUM
     Indication: Pulmonary arterial hypertension
     Dosage: EXPIRY: 31-JAN-2026
     Route: 042
  2. EPOPROSTENOL SODIUM [Suspect]
     Active Substance: EPOPROSTENOL SODIUM
     Indication: Pulmonary hypertension
  3. WINREVAIR [Suspect]
     Active Substance: SOTATERCEPT-CSRK
     Indication: Product used for unknown indication
     Route: 065
  4. OPSUMIT [Concomitant]
     Active Substance: MACITENTAN
  5. ADEMPAS [Concomitant]
     Active Substance: RIOCIGUAT
  6. SOTATERCEPT [Concomitant]
     Active Substance: SOTATERCEPT

REACTIONS (13)
  - Device occlusion [Unknown]
  - Underdose [Unknown]
  - Drug delivery system malfunction [Unknown]
  - Product administration interrupted [Unknown]
  - Seasonal allergy [Unknown]
  - Epistaxis [Unknown]
  - Pharyngitis streptococcal [Unknown]
  - Mass [Unknown]
  - Fatigue [Unknown]
  - Pain [Unknown]
  - Somnolence [Unknown]
  - Infusion site erythema [Unknown]
  - Pyrexia [Unknown]

NARRATIVE: CASE EVENT DATE: 20241002
